FAERS Safety Report 20533748 (Version 1)
Quarter: 2022Q1

REPORT INFORMATION
  Report Type: Spontaneous
  Country: CN (occurrence: CN)
  Receive Date: 20220301
  Receipt Date: 20220301
  Transmission Date: 20220423
  Serious: Yes (Other)
  Sender: FDA-Public Use
  Company Number: CN-CELGENE-CHN-20220206914

PATIENT
  Sex: Male

DRUGS (10)
  1. ABRAXANE [Suspect]
     Active Substance: PACLITAXEL
     Indication: Non-small cell lung cancer
     Dosage: CYCLE 1
     Route: 041
     Dates: start: 20200610
  2. ABRAXANE [Suspect]
     Active Substance: PACLITAXEL
     Dosage: CYCLE 1
     Route: 041
     Dates: start: 20200610
  3. ABRAXANE [Suspect]
     Active Substance: PACLITAXEL
     Dosage: CYCLE 2
     Route: 041
     Dates: start: 20200717
  4. ABRAXANE [Suspect]
     Active Substance: PACLITAXEL
     Dosage: CYCLE 3
     Route: 041
  5. CARBOPLATIN [Suspect]
     Active Substance: CARBOPLATIN
     Indication: Non-small cell lung cancer
     Dosage: CYCLE 1
     Route: 065
     Dates: start: 20200610
  6. CARBOPLATIN [Suspect]
     Active Substance: CARBOPLATIN
     Dosage: CYCLE 2
     Route: 065
     Dates: start: 20200717
  7. NIVOLUMAB [Suspect]
     Active Substance: NIVOLUMAB
     Indication: Non-small cell lung cancer
     Dosage: CYCLE 1
     Route: 065
     Dates: start: 20200610
  8. NIVOLUMAB [Suspect]
     Active Substance: NIVOLUMAB
     Dosage: CYCLE 2
     Route: 065
     Dates: start: 20200717
  9. NIVOLUMAB [Suspect]
     Active Substance: NIVOLUMAB
     Dosage: CYCLE 3
     Route: 065
  10. NIVOLUMAB [Suspect]
     Active Substance: NIVOLUMAB
     Dosage: MAINTENANCE TREATMENT
     Route: 065

REACTIONS (4)
  - Renal impairment [Unknown]
  - Blood albumin decreased [Unknown]
  - Pyrexia [Unknown]
  - Oedema peripheral [Unknown]
